FAERS Safety Report 6582949-7 (Version None)
Quarter: 2010Q1

REPORT INFORMATION
  Report Type: 
  Country: None (occurrence: None)
  Receive Date: 20100216
  Receipt Date: 20100202
  Transmission Date: 20100710
  Serious: Yes (Hospitalization)
  Sender: FDA-Public Use
  Company Number: US-CELGENEUS-163-20785-10020174

PATIENT
  Sex: Female

DRUGS (2)
  1. THALOMID [Suspect]
     Indication: MULTIPLE MYELOMA
     Route: 048
     Dates: start: 20090101, end: 20100101
  2. THALOMID [Suspect]
     Route: 048
     Dates: start: 20080601, end: 20090101

REACTIONS (4)
  - DEHYDRATION [None]
  - FALL [None]
  - MUSCULAR WEAKNESS [None]
  - NEUROPATHY PERIPHERAL [None]
